FAERS Safety Report 9973107 (Version 1)
Quarter: 2014Q1

REPORT INFORMATION
  Report Type: Report from Study
  Country: US (occurrence: US)
  Receive Date: 20140306
  Receipt Date: 20140306
  Transmission Date: 20141002
  Serious: Yes (Other)
  Sender: FDA-Public Use
  Company Number: US-JNJFOC-20140216419

PATIENT
  Sex: 0

DRUGS (2)
  1. INFLIXIMAB [Suspect]
     Indication: PRODUCT USED FOR UNKNOWN INDICATION
     Dosage: 12 INFUSIONS ON UNSPECIFIED DATES
     Route: 042
  2. INFLIXIMAB [Suspect]
     Indication: PRODUCT USED FOR UNKNOWN INDICATION
     Dosage: 13TH INFUSION ON IUNSPECIFIED DATE; LENGTH OF INFUSION: 40 MINUTES
     Route: 042

REACTIONS (2)
  - Loss of consciousness [Unknown]
  - Infusion related reaction [Unknown]
